FAERS Safety Report 8496212-0 (Version None)
Quarter: 2012Q3

REPORT INFORMATION
  Report Type: 
  Country: None (occurrence: None)
  Receive Date: 20120709
  Receipt Date: 20120703
  Transmission Date: 20120928
  Serious: Yes (Other)
  Sender: FDA-Public Use
  Company Number: US-JNJFOC-20120701408

PATIENT
  Age: 42 Year
  Sex: Female

DRUGS (2)
  1. ITRACONAZOLE [Suspect]
     Indication: BLASTOMYCOSIS
     Route: 065
  2. AMPHOTERICIN B [Concomitant]
     Indication: BLASTOMYCOSIS
     Route: 065

REACTIONS (1)
  - DUODENAL ULCER [None]
